FAERS Safety Report 16354075 (Version 3)
Quarter: 2019Q2

REPORT INFORMATION
  Report Type: Report from Study
  Country: KR (occurrence: KR)
  Receive Date: 20190524
  Receipt Date: 20190612
  Transmission Date: 20190711
  Serious: Yes (Death, Hospitalization, Other)
  Sender: FDA-Public Use
  Company Number: KR-PFIZER INC-2019143395

PATIENT
  Age: 65 Year
  Sex: Male
  Weight: 56 kg

DRUGS (7)
  1. PROPACETAMOL [Concomitant]
     Active Substance: PROPACETAMOL
     Indication: PROPHYLAXIS
     Dosage: 1 G, AS NEEDED
     Route: 041
     Dates: start: 20190327
  2. ACETAMINOPHEN. [Concomitant]
     Active Substance: ACETAMINOPHEN
     Indication: FEBRILE NEUTROPENIA
     Dosage: 1 G, AS NEEDED
     Route: 041
     Dates: start: 20190327
  3. AZACITIDINE. [Suspect]
     Active Substance: AZACITIDINE
     Indication: ACUTE MYELOID LEUKAEMIA
     Dosage: 121.5 MG, DAILY FOR 7 DAYS
     Route: 058
     Dates: start: 20190314
  4. FILGRASTIM [Concomitant]
     Active Substance: FILGRASTIM
     Dosage: 300 UG, 1X/DAY
     Route: 041
     Dates: start: 20190329
  5. GLASDEGIB [Suspect]
     Active Substance: GLASDEGIB
     Indication: ACUTE MYELOID LEUKAEMIA
     Dosage: ONCE DAILY CONTINOUS
     Route: 048
     Dates: start: 20190314
  6. VANCOMYCIN [Concomitant]
     Active Substance: VANCOMYCIN
     Indication: FEBRILE NEUTROPENIA
     Dosage: 1 G, 3X/DAY
     Route: 041
     Dates: start: 20190328
  7. MEROPENEM. [Concomitant]
     Active Substance: MEROPENEM
     Indication: FEBRILE NEUTROPENIA
     Dosage: 1 G, 3X/DAY
     Route: 041
     Dates: start: 20190328

REACTIONS (1)
  - Pneumonia [Fatal]

NARRATIVE: CASE EVENT DATE: 20190329
